FAERS Safety Report 14190205 (Version 1)
Quarter: 2017Q4

REPORT INFORMATION
  Report Type: Spontaneous
  Country: US (occurrence: US)
  Receive Date: 20171115
  Receipt Date: 20171115
  Transmission Date: 20180321
  Serious: No
  Sender: FDA-Public Use
  Company Number: US-BIOGEN-2017BI00481172

PATIENT
  Sex: Female

DRUGS (1)
  1. AVONEX [Suspect]
     Active Substance: INTERFERON BETA-1A
     Indication: MULTIPLE SCLEROSIS
     Route: 065
     Dates: start: 19970801, end: 20140601

REACTIONS (8)
  - Disturbance in attention [Unknown]
  - Cognitive disorder [Unknown]
  - Muscular weakness [Not Recovered/Not Resolved]
  - Anger [Unknown]
  - Mobility decreased [Not Recovered/Not Resolved]
  - Neuropathy peripheral [Unknown]
  - Learning disability [Unknown]
  - Fall [Recovered/Resolved]
